FAERS Safety Report 9208686 (Version 1)
Quarter: 2013Q2

REPORT INFORMATION
  Report Type: Spontaneous
  Country: US (occurrence: US)
  Receive Date: 20130404
  Receipt Date: 20130404
  Transmission Date: 20140414
  Serious: No
  Sender: FDA-Public Use
  Company Number: US-009507513-1304USA001742

PATIENT
  Age: 73 Year
  Sex: Female

DRUGS (1)
  1. DULERA [Suspect]
     Dosage: 1 STANDARD DOSE OF 13 2 PUFFS TWICE DAILY
     Route: 055
     Dates: end: 20130401

REACTIONS (2)
  - Throat irritation [Recovering/Resolving]
  - Product quality issue [Unknown]
